FAERS Safety Report 8078417-6 (Version None)
Quarter: 2012Q1

REPORT INFORMATION
  Report Type: 
  Country: None (occurrence: None)
  Receive Date: 20120123
  Receipt Date: 20120106
  Transmission Date: 20120608
  Serious: Yes (Disabling)
  Sender: FDA-Public Use
  Company Number: 1156932

PATIENT
  Age: 63 Year
  Sex: Female

DRUGS (5)
  1. (HYPERTONIC SALINE SOLUTION) [Suspect]
     Indication: HYPONATRAEMIA
     Dosage: INTRAVENOUS DRIP
     Route: 041
  2. HYDROCHLOROTHIAZIDE [Concomitant]
  3. SODIUM CHLORIDE [Suspect]
     Indication: HYPONATRAEMIA
     Dosage: INTRAVENOUS DRIP
     Route: 041
  4. OLMESARTAN MEDOXOMIL [Concomitant]
  5. (ANTIBIOTICS) [Concomitant]

REACTIONS (1)
  - OSMOTIC DEMYELINATION SYNDROME [None]
